FAERS Safety Report 5511334-1 (Version None)
Quarter: 2007Q4

REPORT INFORMATION
  Report Type: 
  Country: None (occurrence: None)
  Receive Date: 20071109
  Receipt Date: 20070927
  Transmission Date: 20080405
  Serious: No
  Sender: FDA-Public Use
  Company Number: A0677768A

PATIENT
  Age: 54 Year
  Sex: Female

DRUGS (4)
  1. ALTABAX [Suspect]
     Route: 061
  2. ATACAND HCT [Concomitant]
     Route: 048
  3. PREMARIN [Concomitant]
     Route: 048
  4. ZOLOFT [Concomitant]
     Route: 048

REACTIONS (2)
  - APPLICATION SITE VESICLES [None]
  - BLISTER [None]
